FAERS Safety Report 7960768-4 (Version None)
Quarter: 2011Q4

REPORT INFORMATION
  Report Type: 
  Country: None (occurrence: None)
  Receive Date: 20111207
  Receipt Date: 20111128
  Transmission Date: 20120403
  Serious: Yes (Death, Life-Threatening, Other)
  Sender: FDA-Public Use
  Company Number: JP-BRISTOL-MYERS SQUIBB COMPANY-16166845

PATIENT
  Age: 79 Year
  Sex: Female

DRUGS (17)
  1. PROGRAF [Suspect]
     Indication: RHEUMATOID ARTHRITIS
     Dates: end: 20110101
  2. NABUMETONE [Concomitant]
     Indication: RHEUMATOID ARTHRITIS
  3. CALCIUM PANTOTHENATE [Concomitant]
  4. SENNOSIDE A+B [Concomitant]
     Indication: CONSTIPATION
  5. SULFASALAZINE [Concomitant]
     Indication: RHEUMATOID ARTHRITIS
  6. ATORVASTATIN CALCIUM [Concomitant]
  7. ASCORBIC ACID [Concomitant]
  8. AMLODIPINE [Concomitant]
  9. ETIZOLAM [Concomitant]
     Indication: INSOMNIA
  10. ISOSORBIDE MONONITRATE [Concomitant]
  11. MECOBALAMIN [Concomitant]
  12. RISEDRONATE SODIUM [Concomitant]
     Indication: OSTEOPOROSIS
  13. ORENCIA [Suspect]
     Indication: RHEUMATOID ARTHRITIS
     Dosage: 500MG:17MAY11,31MAY11,14JUN11,12JUL11,9AUG11
     Route: 041
     Dates: start: 20110517
  14. METHOTREXATE [Suspect]
     Indication: RHEUMATOID ARTHRITIS
     Dosage: 10.5MG/WEEK:21JAN11-28FEB11 10MG/WEEK:1MAR11-5SEP11
     Dates: start: 20110121, end: 20110905
  15. VALSARTAN [Concomitant]
  16. ASPIRIN [Concomitant]
  17. FOLIC ACID [Concomitant]
     Indication: RHEUMATOID ARTHRITIS

REACTIONS (7)
  - HYPONATRAEMIA [None]
  - HEPATORENAL SYNDROME [None]
  - FLUID RETENTION [None]
  - INTERSTITIAL LUNG DISEASE [None]
  - HYPOALBUMINAEMIA [None]
  - DISSEMINATED INTRAVASCULAR COAGULATION [None]
  - PNEUMOCYSTIS JIROVECI PNEUMONIA [None]
